FAERS Safety Report 13837430 (Version 1)
Quarter: 2017Q3

REPORT INFORMATION
  Report Type: Spontaneous
  Country: US (occurrence: US)
  Receive Date: 20170804
  Receipt Date: 20170804
  Transmission Date: 20171127
  Serious: No
  Sender: FDA-Public Use
  Company Number: US-ROCHE-1001831

PATIENT
  Age: 68 Year
  Sex: Female

DRUGS (1)
  1. BONIVA [Suspect]
     Active Substance: IBANDRONATE SODIUM
     Indication: OSTEOPOROSIS
     Route: 048

REACTIONS (9)
  - Pain in extremity [Not Recovered/Not Resolved]
  - Headache [Unknown]
  - Dysphagia [Recovered/Resolved]
  - Diarrhoea [Unknown]
  - Facial pain [Unknown]
  - Pain [Unknown]
  - Pain in extremity [Unknown]
  - Dyspepsia [Unknown]
  - Amnesia [Not Recovered/Not Resolved]
